FAERS Safety Report 5209218-1 (Version None)
Quarter: 2007Q1

REPORT INFORMATION
  Report Type: 
  Country: None (occurrence: None)
  Receive Date: 20070110
  Receipt Date: 20061227
  Transmission Date: 20070707
  Serious: Yes (Other)
  Sender: FDA-Public Use
  Company Number: BASF-06-017

PATIENT
  Sex: Female

DRUGS (1)
  1. IBUPROFEN [Suspect]
     Dosage: 600MG X 25-30 TABS, PO
     Route: 048
     Dates: start: 20061207

REACTIONS (3)
  - INCORRECT DOSE ADMINISTERED [None]
  - SELF-MEDICATION [None]
  - VOMITING [None]
